FAERS Safety Report 7808611-8 (Version None)
Quarter: 2011Q4

REPORT INFORMATION
  Report Type: 
  Country: None (occurrence: None)
  Receive Date: 20111012
  Receipt Date: 20111007
  Transmission Date: 20120403
  Serious: No
  Sender: FDA-Public Use
  Company Number: US-PFIZER INC-2011240348

PATIENT
  Sex: Male

DRUGS (7)
  1. LIPITOR [Concomitant]
     Dosage: 20 MG, UNK
  2. AVODART [Concomitant]
     Indication: PROSTATIC DISORDER
     Dosage: UNK
  3. ATIVAN [Concomitant]
     Dosage: UNK
  4. LYRICA [Suspect]
     Dosage: 100 MG, 2X/DAY
     Route: 048
     Dates: start: 20111007
  5. SPIRIVA [Concomitant]
     Dosage: UNK
  6. ACETYLSALICYLIC ACID [Concomitant]
     Dosage: UNK
  7. SYMBICORT [Concomitant]
     Dosage: UNK

REACTIONS (1)
  - SEDATION [None]
